FAERS Safety Report 21124619 (Version 3)
Quarter: 2022Q4

REPORT INFORMATION
  Report Type: Spontaneous
  Country: JP (occurrence: JP)
  Receive Date: 20220725
  Receipt Date: 20221104
  Transmission Date: 20230113
  Serious: Yes (Congenital Anomaly)
  Sender: FDA-Public Use
  Company Number: JP-NOVOPROD-939434

PATIENT
  Sex: Male
  Weight: 3.24 kg

DRUGS (2)
  1. LEVEMIR [Suspect]
     Active Substance: INSULIN DETEMIR
     Indication: Gestational diabetes
     Dosage: 4 IU, QD (EVENING)
     Route: 064
  2. NOVORAPID [Suspect]
     Active Substance: INSULIN ASPART
     Indication: Gestational diabetes
     Dosage: 6 IU, TID (2-2-2-0 IU/DAY)
     Route: 064

REACTIONS (2)
  - VACTERL syndrome [Unknown]
  - Foetal exposure during pregnancy [Recovered/Resolved]
